FAERS Safety Report 26216160 (Version 1)
Quarter: 2025Q4

REPORT INFORMATION
  Report Type: Spontaneous
  Country: CN (occurrence: CN)
  Receive Date: 20251231
  Receipt Date: 20251231
  Transmission Date: 20260118
  Serious: Yes (Hospitalization)
  Sender: BEIGENE
  Company Number: CN-BEONEMEDICINES-BGN-2025-023857

PATIENT
  Age: 76 Year
  Sex: Male

DRUGS (4)
  1. TISLELIZUMAB [Suspect]
     Active Substance: TISLELIZUMAB
     Indication: Oesophageal carcinoma
     Dosage: 200 MILLIGRAM
  2. ETOPOSIDE [Suspect]
     Active Substance: ETOPOSIDE
     Indication: Oesophageal carcinoma
     Dosage: 0.13 GRAM, QD
     Dates: start: 20251119, end: 20251121
  3. CISPLATIN [Suspect]
     Active Substance: CISPLATIN
     Indication: Oesophageal carcinoma
     Dosage: 40 MILLIGRAM, QD
     Dates: start: 20251119, end: 20251119
  4. CISPLATIN [Suspect]
     Active Substance: CISPLATIN
     Dosage: 30 MILLIGRAM, QD
     Dates: start: 20251120, end: 20251121

REACTIONS (1)
  - Myelosuppression [Recovering/Resolving]

NARRATIVE: CASE EVENT DATE: 20251201
